FAERS Safety Report 6557158-8 (Version None)
Quarter: 2010Q1

REPORT INFORMATION
  Report Type: 
  Country: None (occurrence: None)
  Receive Date: 20100127
  Receipt Date: 20100127
  Transmission Date: 20100710
  Serious: Yes (Death)
  Sender: FDA-Public Use
  Company Number: None

PATIENT
  Age: 6 Year
  Sex: Male
  Weight: 20 kg

DRUGS (2)
  1. TYLENOL-500 [Suspect]
     Indication: PYREXIA
  2. MOTRIN [Concomitant]

REACTIONS (9)
  - ACUTE RESPIRATORY DISTRESS SYNDROME [None]
  - BACTERIAL TEST POSITIVE [None]
  - BURKHOLDERIA CEPACIA COMPLEX INFECTION [None]
  - BURKHOLDERIA CEPACIA COMPLEX SEPSIS [None]
  - COAGULOPATHY [None]
  - HEPATIC FAILURE [None]
  - LIVER INJURY [None]
  - PRODUCT QUALITY ISSUE [None]
  - RENAL FAILURE [None]
